FAERS Safety Report 5085637-1 (Version None)
Quarter: 2006Q3

REPORT INFORMATION
  Report Type: 
  Country: None (occurrence: None)
  Receive Date: 20060822
  Receipt Date: 20060809
  Transmission Date: 20061208
  Serious: Yes (Other)
  Sender: FDA-Public Use
  Company Number: PHBS2006JP11949

PATIENT
  Age: 88 Year
  Sex: Male

DRUGS (5)
  1. LAMISIL [Suspect]
     Indication: NAIL TINEA
     Dosage: 125 MG/D
     Route: 048
     Dates: start: 20060626, end: 20060726
  2. PERDIPINE [Concomitant]
     Route: 048
  3. TANATRIL [Concomitant]
     Route: 048
  4. 8-HOUR BAYER [Concomitant]
     Route: 048
  5. ALESION [Concomitant]
     Route: 048

REACTIONS (8)
  - ANOREXIA [None]
  - BLOOD CREATINE PHOSPHOKINASE INCREASED [None]
  - C-REACTIVE PROTEIN INCREASED [None]
  - FLUID INTAKE REDUCED [None]
  - LIMB DISCOMFORT [None]
  - MUSCULAR WEAKNESS [None]
  - PYREXIA [None]
  - RHABDOMYOLYSIS [None]
